FAERS Safety Report 15111632 (Version 1)
Quarter: 2018Q3

REPORT INFORMATION
  Report Type: Report from Study
  Country: US (occurrence: US)
  Receive Date: 20180705
  Receipt Date: 20180705
  Transmission Date: 20181010
  Serious: Yes (Other)
  Sender: FDA-Public Use
  Company Number: US-BAYER-2018-123930

PATIENT
  Age: 67 Year
  Sex: Female

DRUGS (3)
  1. ABCIXIMAB [Concomitant]
     Active Substance: ABCIXIMAB
     Route: 042
  2. ASPIRIN. [Suspect]
     Active Substance: ASPIRIN
  3. HEPARIN [Concomitant]
     Active Substance: HEPARIN SODIUM
     Dosage: 4750 U, UNK
     Route: 042

REACTIONS (1)
  - Haemorrhage [None]
